FAERS Safety Report 8725272 (Version 3)
Quarter: 2012Q4

REPORT INFORMATION
  Report Type: 
  Country: US (occurrence: US)
  Receive Date: 20120815
  Receipt Date: 20120926
  Transmission Date: 20130627
  Serious: Yes (Death)
  Sender: FDA-Public Use
  Company Number: US-PFIZER INC-2012194482

PATIENT
  Age: 86 Year
  Sex: Male

DRUGS (2)
  1. XALATAN [Suspect]
     Indication: GLAUCOMA
     Dosage: 1 Gtt, 1x/day
     Route: 047
     Dates: start: 20020819
  2. ACCUPRIL [Suspect]
     Dosage: UNK

REACTIONS (1)
  - Death [Fatal]
